FAERS Safety Report 8740440 (Version 4)
Quarter: 2015Q3

REPORT INFORMATION
  Report Type: Spontaneous
  Country: US (occurrence: US)
  Receive Date: 20120823
  Receipt Date: 20150911
  Transmission Date: 20151125
  Serious: No
  Sender: FDA-Public Use
  Company Number: US-009507513-1208USA005201

PATIENT
  Sex: Male
  Weight: 91.61 kg

DRUGS (1)
  1. PROPECIA [Suspect]
     Active Substance: FINASTERIDE
     Indication: ANDROGENETIC ALOPECIA
     Dosage: 1 MG, QD
     Route: 048
     Dates: start: 20040116, end: 20070706

REACTIONS (17)
  - Vision blurred [Unknown]
  - Hyperlipidaemia [Not Recovered/Not Resolved]
  - Libido decreased [Unknown]
  - Fatigue [Unknown]
  - Limb injury [Unknown]
  - Gastrooesophageal reflux disease [Unknown]
  - Vascular insufficiency [Unknown]
  - Atrioventricular block first degree [Unknown]
  - Coagulopathy [Unknown]
  - Sexual dysfunction [Not Recovered/Not Resolved]
  - Hypogonadism [Unknown]
  - Musculoskeletal pain [Unknown]
  - Migraine [Unknown]
  - Erectile dysfunction [Not Recovered/Not Resolved]
  - Genital cyst [Unknown]
  - Anxiety [Unknown]
  - Cognitive disorder [Not Recovered/Not Resolved]

NARRATIVE: CASE EVENT DATE: 2006
